FAERS Safety Report 19634891 (Version 1)
Quarter: 2021Q3

REPORT INFORMATION
  Report Type: Spontaneous
  Country: IT (occurrence: IT)
  Receive Date: 20210730
  Receipt Date: 20210730
  Transmission Date: 20211014
  Serious: Yes (Hospitalization)
  Sender: FDA-Public Use
  Company Number: IT-ASTRAZENECA-2021A637052

PATIENT
  Age: 92 Year
  Sex: Female

DRUGS (6)
  1. TACHIDOL [Concomitant]
     Active Substance: ACETAMINOPHEN\CODEINE PHOSPHATE
     Route: 048
  2. INDERAL [Concomitant]
     Active Substance: PROPRANOLOL HYDROCHLORIDE
     Route: 048
  3. VERECOLENE C.M. [Concomitant]
     Route: 048
  4. ESOPRAL [Suspect]
     Active Substance: ESOMEPRAZOLE
     Route: 048
  5. XALATAN [Concomitant]
     Active Substance: LATANOPROST
     Route: 047
  6. TAVOR [Concomitant]
     Route: 048

REACTIONS (3)
  - Deficiency anaemia [Unknown]
  - Decreased appetite [Unknown]
  - Abdominal pain upper [Unknown]

NARRATIVE: CASE EVENT DATE: 20210424
